FAERS Safety Report 8543955-6 (Version None)
Quarter: 2012Q3

REPORT INFORMATION
  Report Type: 
  Country: None (occurrence: None)
  Receive Date: 20120717
  Receipt Date: 20110826
  Transmission Date: 20120928
  Serious: Yes (Other)
  Sender: FDA-Public Use
  Company Number: 2032714-2011-0007

PATIENT
  Age: 68 Year
  Sex: Female

DRUGS (2)
  1. CHLORHEXIDINE GLUCONATE [Suspect]
     Indication: GINGIVITIS
     Dosage: ORAL - TWICE A DAY;
  2. BENADRYL [Concomitant]

REACTIONS (2)
  - LIP SWELLING [None]
  - LIP BLISTER [None]
